FAERS Safety Report 9029355 (Version 2)
Quarter: 2013Q2

REPORT INFORMATION
  Report Type: Spontaneous
  Country: US (occurrence: US)
  Receive Date: 20130125
  Receipt Date: 20130401
  Transmission Date: 20140414
  Serious: Yes (Hospitalization)
  Sender: FDA-Public Use
  Company Number: US-BAYER-2013-009300

PATIENT
  Age: 28 Year
  Sex: Female
  Weight: 84.81 kg

DRUGS (5)
  1. YASMIN [Suspect]
  2. YAZ [Suspect]
  3. METFORMIN [Concomitant]
     Dosage: 500 MG, FOR ONE WEEK
     Route: 048
  4. DESOGEN [DESOGESTREL,ETHINYLESTRADIOL] [Concomitant]
     Dosage: 0.15-30 MG-MCG TABS (TABLETS) ONE DAILY
  5. VICODIN [Concomitant]
     Dosage: 5 PER 500, AS NEEDED

REACTIONS (4)
  - Cerebrovascular accident [None]
  - Pain [None]
  - Injury [None]
  - Pain [None]
